FAERS Safety Report 9209080 (Version 1)
Quarter: 2013Q2

REPORT INFORMATION
  Report Type: Spontaneous
  Country: AU (occurrence: AU)
  Receive Date: 20130404
  Receipt Date: 20130404
  Transmission Date: 20140414
  Serious: Yes (Disabling, Other)
  Sender: FDA-Public Use
  Company Number: PHHY2013AU032267

PATIENT
  Age: 86 Year
  Sex: Male

DRUGS (1)
  1. ZOMETA [Suspect]
     Indication: OSTEOPOROSIS
     Dosage: 4 MG, ONE SINGLE DOSE
     Route: 041
     Dates: start: 20121101, end: 20121101

REACTIONS (3)
  - Neurological symptom [Not Recovered/Not Resolved]
  - Peroneal nerve palsy [Unknown]
  - Muscular weakness [Unknown]
